FAERS Safety Report 9291582 (Version 2)
Quarter: 2013Q2

REPORT INFORMATION
  Report Type: Spontaneous
  Country: FR (occurrence: FR)
  Receive Date: 20130515
  Receipt Date: 20130523
  Transmission Date: 20140414
  Serious: Yes (Other)
  Sender: FDA-Public Use
  Company Number: FR-NICOBRDEVP-2013-08326

PATIENT
  Sex: Female

DRUGS (1)
  1. PREDNISONE [Suspect]
     Indication: POLYARTHRITIS
     Dosage: 20 MG, UNK
     Route: 048
     Dates: start: 201302

REACTIONS (3)
  - Visual impairment [Unknown]
  - Drug ineffective [Unknown]
  - Therapeutic response unexpected with drug substitution [Unknown]
